FAERS Safety Report 10560406 (Version 1)
Quarter: 2014Q4

REPORT INFORMATION
  Report Type: Spontaneous
  Country: AT (occurrence: AT)
  Receive Date: 20141103
  Receipt Date: 20141103
  Transmission Date: 20150529
  Serious: Yes (Other)
  Sender: FDA-Public Use
  Company Number: AT-TEVA-519176ISR

PATIENT
  Age: 235 Hour
  Sex: Male

DRUGS (5)
  1. NITRIC OXIDE. [Concomitant]
     Active Substance: NITRIC OXIDE
     Indication: PULMONARY HYPERTENSION
     Dosage: PRIOR SILDENAFIL COMMENCEMENT
     Route: 055
  2. SILDENAFIL. [Interacting]
     Active Substance: SILDENAFIL
     Indication: PULMONARY HYPERTENSION
     Dosage: (CONTINUOUS INFUSION) 0.5 MG/KG/DAY
     Route: 041
  3. MILRINONE [Interacting]
     Active Substance: MILRINONE
     Indication: PULMONARY HYPERTENSION
     Dosage: 0.6 MCG/KG/MIN
     Route: 050
  4. SILDENAFIL. [Suspect]
     Active Substance: SILDENAFIL
     Indication: PULMONARY HYPERTENSION
     Dosage: (LOADING DOSE) 0.1 MG/KG OVER 45 MIN.
     Route: 042
  5. NOREPINEPHRINE [Concomitant]
     Active Substance: NOREPINEPHRINE\NOREPINEPHRINE BITARTRATE
     Indication: PULMONARY HYPERTENSION
     Dosage: 0.21 MCG/KG/MIN (1HR PRIOR AND AFTER SILDENAFIL START)
     Route: 050

REACTIONS (2)
  - Pulmonary haemorrhage [Unknown]
  - Drug interaction [Unknown]
